FAERS Safety Report 6222907-5 (Version None)
Quarter: 2009Q2

REPORT INFORMATION
  Report Type: 
  Country: None (occurrence: None)
  Receive Date: 20090611
  Receipt Date: 20090605
  Transmission Date: 20091009
  Serious: Yes (Hospitalization, Other)
  Sender: FDA-Public Use
  Company Number: DE-BAYER-200833146GPV

PATIENT
  Age: 70 Year
  Sex: Female
  Weight: 67 kg

DRUGS (12)
  1. SORAFENIB [Suspect]
     Indication: HEPATIC NEOPLASM MALIGNANT
     Dosage: TOTAL DAILY DOSE: 800 MG
     Route: 048
     Dates: start: 20081020, end: 20090105
  2. ALLOPURINOL [Concomitant]
     Indication: HYPERURICAEMIA
     Dosage: 0-0-1, ONGOING
     Route: 045
     Dates: start: 20090101
  3. HYDROCHLOROTHIAZIDE [Concomitant]
     Indication: OEDEMA
     Dosage: 1/2-0-0, ONGOING
     Route: 065
     Dates: start: 20090101
  4. L-THYROXIN [Concomitant]
     Indication: DRUG USE FOR UNKNOWN INDICATION
     Dosage: 1-0-0
     Route: 065
  5. ENALAPRIL [Concomitant]
     Indication: DRUG USE FOR UNKNOWN INDICATION
     Dosage: 1-0-0
     Route: 065
  6. TORSEMIDE [Concomitant]
     Indication: DRUG USE FOR UNKNOWN INDICATION
     Dosage: 2-1-0
     Route: 065
  7. SPIRONOLACTONE [Concomitant]
     Indication: DRUG USE FOR UNKNOWN INDICATION
     Dosage: 2-0-1
     Route: 065
  8. METOPROLOL SUCCINATE [Concomitant]
     Indication: DRUG USE FOR UNKNOWN INDICATION
     Dosage: 1-0-0
     Route: 065
  9. AMLODIPINE [Concomitant]
     Indication: DRUG USE FOR UNKNOWN INDICATION
     Dosage: 1-0-1
     Route: 065
  10. PANTOZOLE [Concomitant]
     Indication: DRUG USE FOR UNKNOWN INDICATION
     Dosage: 0-0-1
     Route: 065
  11. METOCLOPRAMIDE [Concomitant]
     Indication: DRUG USE FOR UNKNOWN INDICATION
     Dosage: TOTAL DAILY DOSE: 60 GTT
     Route: 065
  12. NOVALGIN [Concomitant]
     Indication: DRUG USE FOR UNKNOWN INDICATION
     Route: 065

REACTIONS (2)
  - ASCITES [None]
  - PLEURAL EFFUSION [None]
